FAERS Safety Report 21628588 (Version 2)
Quarter: 2022Q4

REPORT INFORMATION
  Report Type: Spontaneous
  Country: US (occurrence: US)
  Receive Date: 20221122
  Receipt Date: 20221227
  Transmission Date: 20230113
  Serious: No
  Sender: FDA-Public Use
  Company Number: US-PFIZER INC-PV202200108573

PATIENT
  Age: 69 Year
  Sex: Female

DRUGS (2)
  1. IBRANCE [Suspect]
     Active Substance: PALBOCICLIB
     Dosage: 125 MG
  2. LETROZOLE [Suspect]
     Active Substance: LETROZOLE
     Dosage: UNK

REACTIONS (10)
  - Pruritus [Unknown]
  - Poor quality sleep [Unknown]
  - Feeling of body temperature change [Unknown]
  - Nasal congestion [Unknown]
  - Rhinorrhoea [Unknown]
  - Lacrimation increased [Unknown]
  - Hot flush [Unknown]
  - Urinary tract infection [Unknown]
  - Aphthous ulcer [Unknown]
  - White blood cell count decreased [Unknown]
